FAERS Safety Report 5934327-9 (Version None)
Quarter: 2008Q4

REPORT INFORMATION
  Report Type: 
  Country: None (occurrence: None)
  Receive Date: 20081029
  Receipt Date: 20081020
  Transmission Date: 20090506
  Serious: Yes (Other)
  Sender: FDA-Public Use
  Company Number: PHEH2008US04950

PATIENT
  Sex: Female

DRUGS (1)
  1. FEMARA [Suspect]
     Dosage: UNK
     Dates: start: 20070901

REACTIONS (4)
  - ACTINIC KERATOSIS [None]
  - CHEILITIS [None]
  - LIP PAIN [None]
  - SUNBURN [None]
